FAERS Safety Report 6032709-0 (Version None)
Quarter: 2009Q1

REPORT INFORMATION
  Report Type: 
  Country: None (occurrence: None)
  Receive Date: 20090109
  Receipt Date: 20081229
  Transmission Date: 20090719
  Serious: Yes (Hospitalization)
  Sender: FDA-Public Use
  Company Number: JP-BAXTER-2009BH000012

PATIENT
  Age: 60 Year
  Sex: Female

DRUGS (2)
  1. IFOSFAMIDE [Suspect]
     Indication: NASAL SINUS CANCER
     Route: 041
     Dates: start: 20080827, end: 20080831
  2. IFOSFAMIDE [Suspect]
     Route: 041
     Dates: start: 20081031, end: 20081101

REACTIONS (6)
  - ALTERED STATE OF CONSCIOUSNESS [None]
  - ANTEROGRADE AMNESIA [None]
  - HALLUCINATION [None]
  - RESTLESSNESS [None]
  - TREMOR [None]
  - URINARY INCONTINENCE [None]
